FAERS Safety Report 12137199 (Version 1)
Quarter: 2016Q1

REPORT INFORMATION
  Report Type: Spontaneous
  Country: US (occurrence: US)
  Receive Date: 20160302
  Receipt Date: 20160302
  Transmission Date: 20160526
  Serious: No
  Sender: FDA-Public Use
  Company Number: US-INSYS THERAPEUTICS, INC-INS201510-000427

PATIENT
  Age: 48 Year
  Sex: Female
  Weight: 45.36 kg

DRUGS (2)
  1. SUBSYS [Suspect]
     Active Substance: FENTANYL
  2. SUBSYS [Suspect]
     Active Substance: FENTANYL
     Indication: BREAKTHROUGH PAIN
     Dates: start: 201508

REACTIONS (1)
  - Oral mucosal eruption [Recovered/Resolved]

NARRATIVE: CASE EVENT DATE: 20150909
